FAERS Safety Report 11247875 (Version 1)
Quarter: 2015Q3

REPORT INFORMATION
  Report Type: Spontaneous
  Country: CN (occurrence: CN)
  Receive Date: 20150708
  Receipt Date: 20150708
  Transmission Date: 20151125
  Serious: Yes (Disabling)
  Sender: FDA-Public Use
  Company Number: CN-BAYER-2015-371283

PATIENT
  Age: 79 Year
  Sex: Female
  Weight: 50.5 kg

DRUGS (3)
  1. BAYASPIRIN [Suspect]
     Active Substance: ASPIRIN
     Indication: CORONARY ARTERY DISEASE
     Dosage: 100 MG, QD
     Route: 048
     Dates: start: 20100101, end: 20150228
  2. ARCOXIA [Suspect]
     Active Substance: ETORICOXIB
     Indication: CHONDRITIS
     Dosage: 0.4 MG, BID
     Route: 048
     Dates: start: 20140201, end: 20150228
  3. CELEBREX [Suspect]
     Active Substance: CELECOXIB
     Indication: CHONDRITIS
     Dosage: 200 MG, BID
     Route: 048
     Dates: start: 20140201, end: 20150228

REACTIONS (1)
  - Gastric ulcer haemorrhage [Recovering/Resolving]

NARRATIVE: CASE EVENT DATE: 20150216
